FAERS Safety Report 4592570-8 (Version None)
Quarter: 2005Q1

REPORT INFORMATION
  Report Type: 
  Country: None (occurrence: None)
  Receive Date: 20050222
  Receipt Date: 20050204
  Transmission Date: 20050727
  Serious: No
  Sender: FDA-Public Use
  Company Number: 2005AP01017

PATIENT
  Age: 70 Year
  Sex: Male

DRUGS (4)
  1. NAROPIN [Suspect]
     Indication: EPIDURAL ANAESTHESIA
     Dosage: 2 UG/ML DAILY ED
  2. FENTANYL [Suspect]
  3. HEPARIN SODIUM [Concomitant]
  4. TIMOLOL MALEATE [Concomitant]

REACTIONS (7)
  - AGITATION [None]
  - ASPIRATION [None]
  - COLLAPSE OF LUNG [None]
  - CONFUSIONAL STATE [None]
  - HYPOTENSION [None]
  - LUNG CONSOLIDATION [None]
  - RESPIRATORY DEPRESSION [None]
